FAERS Safety Report 5286073-5 (Version None)
Quarter: 2007Q1

REPORT INFORMATION
  Report Type: 
  Country: None (occurrence: None)
  Receive Date: 20070329
  Receipt Date: 20070317
  Transmission Date: 20070707
  Serious: Yes (Disabling)
  Sender: FDA-Public Use
  Company Number: ABILP-06-0256

PATIENT
  Age: 62 Year
  Sex: Female
  Weight: 65.9 kg

DRUGS (6)
  1. ABRAXANE (ABRAXANE FOR INJECTION SUSPENSION (PACLITAXEL PROTEIN-BOUND [Suspect]
     Indication: BREAST CANCER
     Dosage: 430 MG DAY/EVERY 3 WEEKS/18 DOSES (EVERY 3 WEEKS), INTRAVENOUS DRIP
     Route: 041
     Dates: start: 20050602, end: 20060627
  2. STEROID (CORTICOSTEROIDS) [Suspect]
     Indication: FACIAL PALSY
  3. ATENOLOL [Concomitant]
  4. EFFEXOR [Concomitant]
  5. BEXTRA [Concomitant]
  6. AMBIEN [Concomitant]

REACTIONS (2)
  - DISEASE PROGRESSION [None]
  - FACIAL PALSY [None]
